FAERS Safety Report 13291862 (Version 1)
Quarter: 2017Q1

REPORT INFORMATION
  Report Type: Spontaneous
  Country: JP (occurrence: JP)
  Receive Date: 20170303
  Receipt Date: 20170303
  Transmission Date: 20170428
  Serious: Yes (Hospitalization, Other)
  Sender: FDA-Public Use
  Company Number: JP-GLAXOSMITHKLINE-JP2017JPN028033

PATIENT
  Age: 84 Year
  Sex: Female

DRUGS (5)
  1. VANCOMYCIN HYDROCHLORIDE. [Concomitant]
     Active Substance: VANCOMYCIN HYDROCHLORIDE
     Dosage: 1 G, 1D
  2. CEFAZOLIN SODIUM. [Concomitant]
     Active Substance: CEFAZOLIN SODIUM
     Dosage: 2 G, 1D
  3. FOSFOMYCIN NA [Concomitant]
     Dosage: 2 G, 1D
  4. FLUTIDE [Suspect]
     Active Substance: FLUTICASONE PROPIONATE
     Indication: ASTHMA
     Dosage: 500 ?G, BID
     Route: 055
  5. SULFAMETHOXAZOLE + TRIMETHOPRIM [Concomitant]
     Active Substance: SULFAMETHOXAZOLE\TRIMETHOPRIM
     Dosage: 2 G, 1D

REACTIONS (7)
  - Medical device site pustule [Recovering/Resolving]
  - Infective aneurysm [Recovering/Resolving]
  - Mediastinal disorder [Recovering/Resolving]
  - Device related infection [Recovering/Resolving]
  - Cardiomegaly [Recovering/Resolving]
  - Vascular procedure complication [Recovering/Resolving]
  - Aneurysm perforation [Recovering/Resolving]
